FAERS Safety Report 18285905 (Version 1)
Quarter: 2020Q3

REPORT INFORMATION
  Report Type: Spontaneous
  Country: SE (occurrence: SE)
  Receive Date: 20200919
  Receipt Date: 20200919
  Transmission Date: 20201103
  Serious: Yes (Death)
  Sender: FDA-Public Use
  Company Number: SE-ACCORD-201716

PATIENT
  Age: 69 Year
  Sex: Male

DRUGS (13)
  1. OMECAT [Concomitant]
     Active Substance: OMEPRAZOLE
  2. CLOPIDOGREL [Concomitant]
     Active Substance: CLOPIDOGREL BISULFATE
  3. ATORVASTATIN/ATORVASTATIN CALCIUM [Suspect]
     Active Substance: ATORVASTATIN CALCIUM
     Indication: CEREBROVASCULAR ACCIDENT
  4. ATORVASTATIN/ATORVASTATIN CALCIUM [Suspect]
     Active Substance: ATORVASTATIN CALCIUM
     Indication: HYPERLIPIDAEMIA
     Dates: start: 20200414, end: 20200520
  5. PREDNISOLONE. [Concomitant]
     Active Substance: PREDNISOLONE
  6. ENALAPRIL [Concomitant]
     Active Substance: ENALAPRIL
  7. BENFEROL [Concomitant]
  8. CEFOTAXIME [Concomitant]
     Active Substance: CEFOTAXIME SODIUM
  9. AZATHIOPRINE. [Concomitant]
     Active Substance: AZATHIOPRINE
  10. ATORVASTATIN/ATORVASTATIN CALCIUM [Suspect]
     Active Substance: ATORVASTATIN CALCIUM
     Indication: MYOCARDIAL ISCHAEMIA
  11. ADPORT [Concomitant]
     Active Substance: TACROLIMUS
  12. URSOFALK [Concomitant]
     Active Substance: URSODIOL
  13. ASACOL [Concomitant]
     Active Substance: MESALAMINE

REACTIONS (1)
  - Rhabdomyolysis [Fatal]

NARRATIVE: CASE EVENT DATE: 20200511
